FAERS Safety Report 24828143 (Version 2)
Quarter: 2025Q3

REPORT INFORMATION
  Report Type: Spontaneous
  Country: US (occurrence: US)
  Receive Date: 20250109
  Receipt Date: 20250922
  Transmission Date: 20251020
  Serious: No
  Sender: ITALFARMACO SPA
  Company Number: US-ITALFARMACO SPA-2168724

PATIENT
  Age: 12 Year
  Sex: Male
  Weight: 25.40 kg

DRUGS (3)
  1. DUVYZAT [Suspect]
     Active Substance: GIVINOSTAT
  2. LISINOPRIL [Concomitant]
     Active Substance: LISINOPRIL
  3. EMFLAZA [Concomitant]
     Active Substance: DEFLAZACORT

REACTIONS (2)
  - Blood triglycerides increased [Unknown]
  - Thrombocytopenia [Unknown]

NARRATIVE: CASE EVENT DATE: 20241114
